FAERS Safety Report 8198934-8 (Version None)
Quarter: 2012Q1

REPORT INFORMATION
  Report Type: 
  Country: None (occurrence: None)
  Receive Date: 20120309
  Receipt Date: 20120224
  Transmission Date: 20120608
  Serious: No
  Sender: FDA-Public Use
  Company Number: US-AMGEN-USASP2012001950

PATIENT
  Age: 76 Year
  Sex: Female
  Weight: 61.224 kg

DRUGS (7)
  1. SYNTHROID [Concomitant]
     Dosage: 88 MUG, UNK
  2. VITAMIN D [Concomitant]
     Dosage: 1 IU, QD
  3. NASONEX [Concomitant]
  4. CALCIUM + VIT D [Concomitant]
  5. PROLIA [Suspect]
     Indication: OSTEOPOROSIS POSTMENOPAUSAL
     Dosage: 60 MG, Q6MO
     Route: 058
     Dates: start: 20111206
  6. RESTASIS [Concomitant]
  7. COMBIVENT [Concomitant]

REACTIONS (6)
  - LIMB DISCOMFORT [None]
  - ARTHRALGIA [None]
  - CALCINOSIS [None]
  - OEDEMA PERIPHERAL [None]
  - PAIN [None]
  - JOINT SWELLING [None]
